FAERS Safety Report 23727521 (Version 1)
Quarter: 2024Q2

REPORT INFORMATION
  Report Type: Spontaneous
  Country: US (occurrence: None)
  Receive Date: 20240409
  Receipt Date: 20240409
  Transmission Date: 20240716
  Serious: No
  Sender: FDA-Public Use
  Company Number: None

PATIENT
  Age: 62 Year
  Sex: Female
  Weight: 45.45 kg

DRUGS (5)
  1. BACLOFEN [Suspect]
     Active Substance: BACLOFEN
     Indication: Muscle strain
     Dosage: OTHER QUANTITY : 1 TABLET(S);?FREQUENCY : 3 TIMES A DAY;?
     Route: 048
     Dates: start: 20240324, end: 20240328
  2. NAPROXEN [Suspect]
     Active Substance: NAPROXEN
     Indication: Muscle strain
     Dosage: OTHER QUANTITY : 1 TABLET(S);?FREQUENCY : TWICE A DAY;?
     Route: 048
     Dates: start: 20240324, end: 20240328
  3. Alendonate sodium [Concomitant]
  4. Estradiol (Imvexxy) [Concomitant]
  5. Calcium Citrate with Vit D3 [Concomitant]

REACTIONS (4)
  - Constipation [None]
  - Ulcer [None]
  - Abdominal pain upper [None]
  - Therapy cessation [None]

NARRATIVE: CASE EVENT DATE: 20240328
